FAERS Safety Report 7864292-9 (Version None)
Quarter: 2011Q4

REPORT INFORMATION
  Report Type: 
  Country: None (occurrence: None)
  Receive Date: 20111028
  Receipt Date: 20110321
  Transmission Date: 20120403
  Serious: No
  Sender: FDA-Public Use
  Company Number: US-GLAXOSMITHKLINE-A0920127A

PATIENT
  Age: 25 Year
  Sex: Female

DRUGS (1)
  1. SEREVENT [Suspect]
     Route: 055

REACTIONS (2)
  - CHEST PAIN [None]
  - ASTHENIA [None]
